FAERS Safety Report 13697864 (Version 1)
Quarter: 2017Q2

REPORT INFORMATION
  Report Type: Report from Study
  Country: None (occurrence: DE)
  Receive Date: 20170628
  Receipt Date: 20170628
  Transmission Date: 20170830
  Serious: Yes (Other)
  Sender: FDA-Public Use
  Company Number: DE-ABBVIE-17K-062-2022075-00

PATIENT
  Sex: Male

DRUGS (1)
  1. DUODOPA [Suspect]
     Active Substance: CARBIDOPA\LEVODOPA
     Indication: PARKINSON^S DISEASE
     Dosage: MD 5.0 ML; CRD 2.5 ML/H; ED 1.0 ML
     Route: 050
     Dates: start: 20170622

REACTIONS (1)
  - Intracranial haematoma [Not Recovered/Not Resolved]

NARRATIVE: CASE EVENT DATE: 20170622
